FAERS Safety Report 6088602-0 (Version None)
Quarter: 2009Q1

REPORT INFORMATION
  Report Type: 
  Country: None (occurrence: None)
  Receive Date: 20090224
  Receipt Date: 20070531
  Transmission Date: 20090719
  Serious: Yes (Death)
  Sender: FDA-Public Use
  Company Number: FR-PFIZER INC-2008155673

PATIENT

DRUGS (21)
  1. IRINOTECAN HCL [Suspect]
     Indication: GASTRIC CANCER
     Dates: start: 20070201
  2. IRINOTECAN HCL [Suspect]
     Dosage: UNK
     Dates: start: 20070215
  3. IRINOTECAN HCL [Suspect]
     Dosage: UNK
     Dates: start: 20070301
  4. IRINOTECAN HCL [Suspect]
     Dosage: UNK
     Dates: start: 20070322
  5. EPIRUBICIN HCL [Suspect]
     Indication: GASTRIC CANCER
     Dosage: 94 MG
     Route: 049
     Dates: start: 20070412, end: 20070412
  6. FOLINIC ACID [Suspect]
     Indication: GASTRIC CANCER
     Dates: start: 20070201
  7. FOLINIC ACID [Suspect]
     Dosage: UNK
     Dates: start: 20070215
  8. FOLINIC ACID [Suspect]
     Dosage: UNK
     Dates: start: 20070301
  9. FOLINIC ACID [Suspect]
     Dosage: UNK
     Dates: start: 20070322
  10. FLUOROURACIL [Suspect]
     Indication: GASTRIC CANCER
     Dates: start: 20070201
  11. FLUOROURACIL [Suspect]
     Dosage: UNK
     Dates: start: 20070215
  12. FLUOROURACIL [Suspect]
     Dosage: UNK
     Dates: start: 20070301
  13. FLUOROURACIL [Suspect]
     Dosage: UNK
     Dates: start: 20070322
  14. CISPLATIN [Suspect]
     Indication: GASTRIC CANCER
     Dosage: 113 MG
     Route: 051
     Dates: start: 20070412, end: 20070412
  15. CAPECITABINE [Suspect]
     Indication: GASTRIC CANCER
     Dates: start: 20070412, end: 20070425
  16. TRANSIPEG [Concomitant]
     Indication: CONSTIPATION
     Dosage: UNK
     Route: 048
     Dates: start: 20070101, end: 20070426
  17. DOMPERIDONE [Concomitant]
     Indication: NAUSEA
     Dosage: 2 TABLETS, 3 TIMES A DAY
     Route: 048
     Dates: start: 20070101, end: 20070426
  18. SKENAN [Concomitant]
     Indication: PAIN
     Dosage: 40 MG, 1X/DAY
     Dates: start: 20070201, end: 20070426
  19. DEROXAT [Concomitant]
     Indication: DEPRESSION
     Dosage: 20 MG, 1X/DAY
     Dates: start: 20020101, end: 20070426
  20. XANAX [Concomitant]
     Indication: DEPRESSION
     Dosage: 0.5 MG, 1X/DAY
     Dates: start: 20020101, end: 20070426
  21. THERALENE [Concomitant]
     Indication: DEPRESSION
     Dosage: DROPS/DAY
     Dates: start: 20020101, end: 20070426

REACTIONS (2)
  - DIARRHOEA [None]
  - LEUKOPENIA [None]
